FAERS Safety Report 10666401 (Version 1)
Quarter: 2014Q4

REPORT INFORMATION
  Report Type: Spontaneous
  Country: US (occurrence: US)
  Receive Date: 20141220
  Receipt Date: 20141220
  Transmission Date: 20150529
  Serious: No
  Sender: FDA-Public Use
  Company Number: US-BAUSCH-SYM-2014-19443

PATIENT
  Sex: Male

DRUGS (1)
  1. XENAZINE [Suspect]
     Active Substance: TETRABENAZINE
     Indication: MEIGE^S SYNDROME
     Dosage: 1 TABLET, 4 TIMES DAILY
     Route: 048
     Dates: start: 201403

REACTIONS (2)
  - Off label use [Unknown]
  - Insomnia [Unknown]
